FAERS Safety Report 9294053 (Version 1)
Quarter: 2013Q1

REPORT INFORMATION
  Report Type: Spontaneous
  Country: US (occurrence: None)
  Receive Date: 20121214
  Receipt Date: 20121214
  Transmission Date: 20140127
  Serious: Yes (Hospitalization)
  Sender: FDA-Public Use
  Company Number: 1207USA008994

PATIENT
  Age: 54 Year
  Sex: Female
  Weight: 108.4 kg

DRUGS (12)
  1. JANUVIA(SITAGLIPTIN PHOSPHATE) FILM-COATED TABLET [Suspect]
     Indication: DIABETES MELLITUS
     Route: 048
  2. SIMVASTATIN(SIMVASTATIN) [Concomitant]
  3. LISINOPRIL(LISINOPRIL) [Concomitant]
  4. COMBIVENT [Concomitant]
  5. VITAMIN D [Concomitant]
  6. METFORMIN(METFORMIN) [Concomitant]
  7. LEXAPRO(ESCITALOPRAM OXALATE) [Concomitant]
  8. ADVAIR (FLUTICASONE PROPIONATE, SALMETEROL XINAFOATE) [Concomitant]
  9. ASPIRIN(ASPIRIN) [Concomitant]
  10. COD LIVER OIL(COD LIVER OIL) CHEWABLE TABLET [Concomitant]
  11. LANTUS(INSULIN GLARGINE) [Concomitant]
  12. GABAPENTIN(GABAPENTIN) [Concomitant]

REACTIONS (4)
  - Pancreatitis acute [None]
  - Diabetes mellitus inadequate control [None]
  - Clostridium difficile colitis [None]
  - Chronic obstructive pulmonary disease [None]
